FAERS Safety Report 25507048 (Version 2)
Quarter: 2025Q3

REPORT INFORMATION
  Report Type: Spontaneous
  Country: JP (occurrence: JP)
  Receive Date: 20250702
  Receipt Date: 20250731
  Transmission Date: 20251021
  Serious: Yes (Hospitalization)
  Sender: AMGEN
  Company Number: JP-DSJP-DS-2025-150394-

PATIENT

DRUGS (2)
  1. DENOSUMAB [Suspect]
     Active Substance: DENOSUMAB
     Indication: Product used for unknown indication
     Dosage: 60 MG, ONCE EVERY 6 MO
     Route: 065
  2. DENOSUMAB [Suspect]
     Active Substance: DENOSUMAB
     Route: 065

REACTIONS (2)
  - Physical deconditioning [Unknown]
  - Inappropriate schedule of product administration [Unknown]
